FAERS Safety Report 13664139 (Version 1)
Quarter: 2017Q2

REPORT INFORMATION
  Report Type: Spontaneous
  Country: DE (occurrence: DE)
  Receive Date: 20170619
  Receipt Date: 20170619
  Transmission Date: 20170830
  Serious: Yes (Other)
  Sender: FDA-Public Use
  Company Number: DE-EDENBRIDGE PHARMACEUTICALS, LLC-DE-2017EDE000075

PATIENT
  Age: 42 Year
  Sex: Female

DRUGS (2)
  1. PREDNISOLONE SODIUM PHOSPHATE. [Suspect]
     Active Substance: PREDNISOLONE SODIUM PHOSPHATE
     Dosage: 2.5 - 7.5MG//KG/DAY
     Route: 048
  2. PREDNISOLONE SODIUM PHOSPHATE. [Suspect]
     Active Substance: PREDNISOLONE SODIUM PHOSPHATE
     Indication: AUTOIMMUNE PANCREATITIS
     Dosage: 0.5?1MG/KG/DAY (GRADUALLY TAPERED)
     Route: 048

REACTIONS (1)
  - Bile duct cancer [Unknown]
